FAERS Safety Report 5804447-8 (Version None)
Quarter: 2008Q3

REPORT INFORMATION
  Report Type: 
  Country: None (occurrence: None)
  Receive Date: 20080709
  Receipt Date: 20080630
  Transmission Date: 20090109
  Serious: Yes (Congenital Anomaly)
  Sender: FDA-Public Use
  Company Number: A0680198A

PATIENT
  Sex: Male

DRUGS (3)
  1. PAXIL [Suspect]
     Indication: DEPRESSION
     Dosage: 20MG PER DAY
     Dates: start: 19930101, end: 20030101
  2. CLARITIN [Concomitant]
     Dates: start: 19930101, end: 20000101
  3. VITAMIN TAB [Concomitant]

REACTIONS (10)
  - AORTIC STENOSIS [None]
  - ATRIAL SEPTAL DEFECT [None]
  - CARDIOMEGALY [None]
  - COARCTATION OF THE AORTA [None]
  - DRUG EXPOSURE DURING PREGNANCY [None]
  - HEPATOMEGALY [None]
  - LEFT VENTRICULAR HYPERTROPHY [None]
  - MITRAL VALVE STENOSIS [None]
  - PERSISTENT FOETAL CIRCULATION [None]
  - SHONE COMPLEX [None]
